FAERS Safety Report 8356203 (Version 7)
Quarter: 2014Q1

REPORT INFORMATION
  Report Type: Spontaneous
  Country: BR (occurrence: BR)
  Receive Date: 20120126
  Receipt Date: 20140225
  Transmission Date: 20141002
  Serious: Yes (Hospitalization, Other)
  Sender: FDA-Public Use
  Company Number: BR-ROCHE-1012702

PATIENT
  Age: 35 Year
  Sex: Male
  Weight: 84 kg

DRUGS (15)
  1. RIVOTRIL [Suspect]
     Indication: IRREGULAR SLEEP PHASE
     Route: 048
     Dates: start: 2009
  2. RIVOTRIL [Suspect]
     Indication: ANXIETY
     Route: 048
  3. RIVOTRIL [Suspect]
     Indication: SOCIAL PHOBIA
     Route: 048
  4. RIVOTRIL [Suspect]
     Indication: INSOMNIA
     Dosage: HALF A TABLET OF 2 MG IN THE MORNING
     Route: 048
     Dates: start: 2009
  5. RIVOTRIL [Suspect]
     Route: 048
     Dates: start: 2014
  6. NORTRIPTYLINE [Suspect]
     Indication: SOCIAL PHOBIA
     Route: 065
  7. FENERGAN [Suspect]
     Indication: PRODUCT USED FOR UNKNOWN INDICATION
     Route: 065
     Dates: start: 2009
  8. HALDOL [Suspect]
     Indication: PRODUCT USED FOR UNKNOWN INDICATION
     Route: 065
     Dates: start: 2009
  9. DIAZEPAM [Suspect]
     Indication: AGITATION
     Route: 048
     Dates: start: 20140105
  10. DIAZEPAM [Suspect]
     Indication: ANXIETY
  11. AMPLICTIL [Concomitant]
     Route: 048
     Dates: start: 20140105
  12. DEPAKENE [Concomitant]
     Indication: BIPOLAR DISORDER
     Route: 048
  13. DEPAKENE [Concomitant]
     Route: 048
     Dates: start: 20110116
  14. ANAFRANIL [Concomitant]
  15. RISPERIDONE [Concomitant]
     Route: 065
     Dates: start: 20140105

REACTIONS (23)
  - Delirium [Recovered/Resolved]
  - Malaise [Unknown]
  - Hallucination [Recovered/Resolved]
  - Thinking abnormal [Recovered/Resolved]
  - Insomnia [Recovering/Resolving]
  - Blood triglycerides increased [Unknown]
  - Agitation [Recovered/Resolved]
  - Malaise [Recovered/Resolved]
  - Malaise [Recovered/Resolved]
  - Drug administration error [Unknown]
  - Fatigue [Recovered/Resolved]
  - Insomnia [Recovered/Resolved]
  - Somnolence [Recovered/Resolved]
  - Confusional state [Not Recovered/Not Resolved]
  - Social phobia [Recovered/Resolved]
  - Thinking abnormal [Unknown]
  - Persecutory delusion [Recovering/Resolving]
  - Decreased interest [Unknown]
  - Drug ineffective [Unknown]
  - Pain in extremity [Not Recovered/Not Resolved]
  - Emotional distress [Not Recovered/Not Resolved]
  - Muscular weakness [Recovering/Resolving]
  - Intentional drug misuse [Unknown]
